FAERS Safety Report 5733934-6 (Version None)
Quarter: 2008Q2

REPORT INFORMATION
  Report Type: 
  Country: None (occurrence: None)
  Receive Date: 20080509
  Receipt Date: 20080415
  Transmission Date: 20081010
  Serious: No
  Sender: FDA-Public Use
  Company Number: US-BOEHRINGER INGELHEIM GMBH, GERMANY-2008-BP-05953BP

PATIENT
  Sex: Male

DRUGS (4)
  1. FLOMAX [Suspect]
     Indication: BENIGN PROSTATIC HYPERPLASIA
     Route: 048
     Dates: start: 20080301
  2. GLYBURIDE [Concomitant]
     Indication: BLOOD GLUCOSE INCREASED
  3. CAPTOPRIL [Concomitant]
     Indication: BLOOD PRESSURE INCREASED
  4. LOVASTATIN [Concomitant]
     Indication: BLOOD CHOLESTEROL INCREASED

REACTIONS (3)
  - BLOOD GLUCOSE INCREASED [None]
  - RESIDUAL URINE [None]
  - URINE FLOW DECREASED [None]
